FAERS Safety Report 10665025 (Version 2)
Quarter: 2015Q1

REPORT INFORMATION
  Report Type: Spontaneous
  Country: SE (occurrence: SE)
  Receive Date: 20141219
  Receipt Date: 20150205
  Transmission Date: 20150720
  Serious: Yes (Hospitalization, Other)
  Sender: FDA-Public Use
  Company Number: SE-NAPPMUNDI-GBR-2014-0024458

PATIENT
  Age: 52 Year
  Sex: Female

DRUGS (1)
  1. NORSPAN [Suspect]
     Active Substance: BUPRENORPHINE
     Indication: PAIN
     Dosage: 10 MCG, UNK
     Route: 062

REACTIONS (3)
  - Fatigue [Unknown]
  - Dizziness [Unknown]
  - Hepatic failure [Unknown]

NARRATIVE: CASE EVENT DATE: 201411
